FAERS Safety Report 6842507-3 (Version None)
Quarter: 2010Q3

REPORT INFORMATION
  Report Type: 
  Country: None (occurrence: None)
  Receive Date: 20100714
  Receipt Date: 20070912
  Transmission Date: 20110219
  Serious: No
  Sender: FDA-Public Use
  Company Number: US-PFIZER INC-2007062387

PATIENT

DRUGS (5)
  1. CHANTIX [Suspect]
     Dates: start: 20070715
  2. PEPTO-BISMOL [Suspect]
     Indication: ERUCTATION
  3. PEPTO-BISMOL [Suspect]
     Indication: PAIN
  4. WARFARIN SODIUM [Concomitant]
     Indication: DEEP VEIN THROMBOSIS
  5. GAVISCON [Concomitant]

REACTIONS (4)
  - BACK PAIN [None]
  - ERUCTATION [None]
  - FAECES DISCOLOURED [None]
  - HERNIA [None]
